FAERS Safety Report 23305951 (Version 1)
Quarter: 2023Q4

REPORT INFORMATION
  Report Type: Spontaneous
  Country: EG (occurrence: None)
  Receive Date: 20231218
  Receipt Date: 20231218
  Transmission Date: 20240110
  Serious: Yes (Other)
  Sender: FDA-Public Use
  Company Number: EG-ROCHE-3475302

PATIENT
  Age: 75 Year
  Sex: Female

DRUGS (7)
  1. ACTEMRA [Suspect]
     Active Substance: TOCILIZUMAB
     Indication: Pulmonary fibrosis
     Route: 065
     Dates: start: 202308
  2. LINEZOLID [Concomitant]
     Active Substance: LINEZOLID
     Route: 048
     Dates: start: 20231015
  3. ACETYLCYSTEINE [Concomitant]
     Active Substance: ACETYLCYSTEINE
     Route: 048
     Dates: start: 20231015
  4. QUIBRON (EGYPT) [Concomitant]
     Route: 048
     Dates: start: 20231015
  5. ZYRTEC (EGYPT) [Concomitant]
     Route: 048
     Dates: start: 20231015
  6. MOTILIUM [Concomitant]
     Active Substance: DOMPERIDONE
     Route: 048
     Dates: start: 20231015
  7. DEXAMETHASONE [Concomitant]
     Active Substance: DEXAMETHASONE
     Dates: start: 20231015

REACTIONS (6)
  - Urinary incontinence [Unknown]
  - Muscular weakness [Unknown]
  - Hypokalaemia [Unknown]
  - Hyponatraemia [Unknown]
  - Blood creatinine increased [Recovered/Resolved]
  - Off label use [Unknown]

NARRATIVE: CASE EVENT DATE: 20231111
